FAERS Safety Report 13897996 (Version 1)
Quarter: 2017Q3

REPORT INFORMATION
  Report Type: Spontaneous
  Country: US (occurrence: None)
  Receive Date: 20170823
  Receipt Date: 20170823
  Transmission Date: 20171127
  Serious: Yes (Hospitalization)
  Sender: FDA-Public Use
  Company Number: None

PATIENT
  Age: 65 Year
  Sex: Female

DRUGS (1)
  1. AMPYRA [Suspect]
     Active Substance: DALFAMPRIDINE
     Indication: MULTIPLE SCLEROSIS
     Route: 048
     Dates: start: 20160601

REACTIONS (6)
  - Laboratory test abnormal [None]
  - Fall [None]
  - Pain in extremity [None]
  - Blood glucose decreased [None]
  - Syncope [None]
  - Disease progression [None]

NARRATIVE: CASE EVENT DATE: 20170728
